FAERS Safety Report 6604663-1 (Version None)
Quarter: 2010Q1

REPORT INFORMATION
  Report Type: 
  Country: None (occurrence: None)
  Receive Date: 20100226
  Receipt Date: 20100218
  Transmission Date: 20100710
  Serious: Yes (Hospitalization)
  Sender: FDA-Public Use
  Company Number: JP-ROCHE-680145

PATIENT
  Age: 56 Year
  Sex: Male

DRUGS (3)
  1. TOCILIZUMAB [Suspect]
     Indication: RHEUMATOID ARTHRITIS
     Dosage: FORM: INJECTION
     Route: 041
     Dates: start: 20090717, end: 20091013
  2. ALENDRONATE SODIUM [Suspect]
     Dosage: DRUG NAME REPORTED AS ALENDRONATE SODIUM HYDRATE (ALENDRONATE SODIUM HYDRATE)
     Route: 048
     Dates: end: 20091209
  3. BAKTAR [Suspect]
     Dosage: DOSE FORM: PERORAL AGENT
     Route: 048
     Dates: end: 20091209

REACTIONS (1)
  - GRANULOCYTOPENIA [None]
